FAERS Safety Report 13840652 (Version 1)
Quarter: 2017Q3

REPORT INFORMATION
  Report Type: Spontaneous
  Country: CZ (occurrence: CZ)
  Receive Date: 20170807
  Receipt Date: 20170807
  Transmission Date: 20171127
  Serious: Yes (Life-Threatening, Hospitalization, Other)
  Sender: FDA-Public Use
  Company Number: CZ-SA-2017SA138527

PATIENT
  Age: 27 Year
  Sex: Male

DRUGS (9)
  1. AMBROBENE [Suspect]
     Active Substance: AMBROXOL HYDROCHLORIDE
     Indication: SUICIDE ATTEMPT
     Route: 065
     Dates: start: 20150829, end: 20150829
  2. DESLORATADINE. [Suspect]
     Active Substance: DESLORATADINE
     Indication: SUICIDE ATTEMPT
     Route: 065
     Dates: start: 20150829, end: 20150829
  3. ACC [Suspect]
     Active Substance: ACETYLCYSTEINE
     Indication: SUICIDE ATTEMPT
     Route: 065
     Dates: start: 20150829, end: 20150829
  4. MAGNE B6 [Suspect]
     Active Substance: MAGNESIUM\PYRIDOXINE
     Indication: SUICIDE ATTEMPT
     Route: 048
     Dates: start: 20150829, end: 20150829
  5. ATARALGIN [Suspect]
     Active Substance: ACETAMINOPHEN\CAFFEINE\GUAIFENESIN
     Indication: SUICIDE ATTEMPT
     Route: 065
     Dates: start: 20150829, end: 20150829
  6. STOPEX [Suspect]
     Active Substance: DEXTROMETHORPHAN HYDROBROMIDE
     Indication: SUICIDE ATTEMPT
     Route: 065
     Dates: start: 20150829, end: 20150829
  7. NOVALGIN [Suspect]
     Active Substance: METAMIZOLE SODIUM
     Indication: SUICIDE ATTEMPT
     Route: 048
     Dates: start: 20150829, end: 20150829
  8. MIGRALGIN [Suspect]
     Active Substance: ACETAMINOPHEN\ASPIRIN\CAFFEINE
     Indication: SUICIDE ATTEMPT
     Route: 048
     Dates: start: 20150829, end: 20150829
  9. PAROXETINE HYDROCHLORIDE. [Suspect]
     Active Substance: PAROXETINE HYDROCHLORIDE
     Indication: SUICIDE ATTEMPT
     Route: 065
     Dates: start: 20150829, end: 20150829

REACTIONS (4)
  - Vomiting [Unknown]
  - Suicide attempt [Unknown]
  - Overdose [Unknown]
  - Intentional product misuse [Unknown]

NARRATIVE: CASE EVENT DATE: 20150829
